FAERS Safety Report 18137237 (Version 2)
Quarter: 2020Q4

REPORT INFORMATION
  Report Type: Spontaneous
  Country: US (occurrence: US)
  Receive Date: 20200812
  Receipt Date: 20201016
  Transmission Date: 20210113
  Serious: No
  Sender: FDA-Public Use
  Company Number: US-ELI_LILLY_AND_COMPANY-US202007007782

PATIENT
  Age: 34 Year
  Sex: Female

DRUGS (12)
  1. HUMULIN N [Suspect]
     Active Substance: INSULIN HUMAN
     Dosage: 10 U, DAILY
     Route: 058
  2. HUMULIN N [Suspect]
     Active Substance: INSULIN HUMAN
     Dosage: 10 U, DAILY
     Route: 058
  3. HUMULIN N [Suspect]
     Active Substance: INSULIN HUMAN
     Dosage: 10 U, DAILY
     Route: 058
  4. HUMULIN N [Suspect]
     Active Substance: INSULIN HUMAN
     Dosage: 10 U, DAILY
     Route: 058
  5. HUMULIN N [Suspect]
     Active Substance: INSULIN HUMAN
     Dosage: 10 U, DAILY
     Route: 058
  6. HUMULIN N [Suspect]
     Active Substance: INSULIN HUMAN
     Indication: TYPE 2 DIABETES MELLITUS
     Dosage: 10 U, DAILY
     Route: 058
     Dates: start: 202003
  7. HUMULIN N [Suspect]
     Active Substance: INSULIN HUMAN
     Indication: TYPE 2 DIABETES MELLITUS
     Dosage: 10 U, DAILY
     Route: 058
     Dates: start: 202003
  8. HUMULIN N [Suspect]
     Active Substance: INSULIN HUMAN
     Dosage: 10 U, DAILY
     Route: 058
  9. HUMULIN N [Suspect]
     Active Substance: INSULIN HUMAN
     Dosage: 10 U, DAILY
     Route: 058
  10. HUMULIN N [Suspect]
     Active Substance: INSULIN HUMAN
     Dosage: 10 U, DAILY
     Route: 058
  11. HUMULIN N [Suspect]
     Active Substance: INSULIN HUMAN
     Dosage: 10 U, DAILY
     Route: 058
  12. HUMULIN N [Suspect]
     Active Substance: INSULIN HUMAN
     Dosage: 10 U, DAILY
     Route: 058

REACTIONS (4)
  - Injection site mass [Recovered/Resolved]
  - Injection site haemorrhage [Unknown]
  - Injection site bruising [Recovering/Resolving]
  - Injection site pain [Recovering/Resolving]

NARRATIVE: CASE EVENT DATE: 20200709
